FAERS Safety Report 14569171 (Version 1)
Quarter: 2018Q1

REPORT INFORMATION
  Report Type: Spontaneous
  Country: US (occurrence: US)
  Receive Date: 20180223
  Receipt Date: 20180223
  Transmission Date: 20180509
  Serious: Yes (Other)
  Sender: FDA-Public Use
  Company Number: None

PATIENT
  Age: 52 Year
  Sex: Female
  Weight: 58.5 kg

DRUGS (1)
  1. AZITHROMYCIN ANHYDROUS. [Suspect]
     Active Substance: AZITHROMYCIN ANHYDROUS
     Indication: TOOTH INFECTION
     Dosage: ?          QUANTITY:6 TABLET(S);OTHER FREQUENCY:2 FIRST DAY;?
     Route: 048
     Dates: start: 20180222, end: 20180223

REACTIONS (2)
  - Tinnitus [None]
  - Abnormal dreams [None]

NARRATIVE: CASE EVENT DATE: 20180223
